FAERS Safety Report 6530776-9 (Version None)
Quarter: 2010Q1

REPORT INFORMATION
  Report Type: 
  Country: None (occurrence: None)
  Receive Date: 20100108
  Receipt Date: 20090409
  Transmission Date: 20100710
  Serious: No
  Sender: FDA-Public Use
  Company Number: A0768026A

PATIENT
  Sex: Female

DRUGS (2)
  1. LOVAZA [Suspect]
     Dosage: 1CAP PER DAY
     Route: 048
     Dates: start: 20081117, end: 20081119
  2. PREDNISONE [Suspect]

REACTIONS (6)
  - PAIN [None]
  - PRURITUS [None]
  - SCRATCH [None]
  - URTICARIA [None]
  - WEIGHT INCREASED [None]
  - WEIGHT LOSS POOR [None]
